FAERS Safety Report 6074121-4 (Version None)
Quarter: 2009Q1

REPORT INFORMATION
  Report Type: 
  Country: None (occurrence: None)
  Receive Date: 20090211
  Receipt Date: 20090206
  Transmission Date: 20090719
  Serious: Yes (Hospitalization)
  Sender: FDA-Public Use
  Company Number: B0557725A

PATIENT
  Age: 83 Year
  Sex: Male

DRUGS (2)
  1. AUGMENTIN '125' [Suspect]
     Dosage: 1G TWICE PER DAY
     Route: 048
     Dates: start: 20090103, end: 20090108
  2. ROCEPHIN [Suspect]
     Dosage: 1G PER DAY
     Route: 042
     Dates: start: 20090109, end: 20090117

REACTIONS (3)
  - COAGULATION FACTOR V LEVEL DECREASED [None]
  - HAEMATOMA [None]
  - PRURITUS [None]
